FAERS Safety Report 16363716 (Version 2)
Quarter: 2020Q4

REPORT INFORMATION
  Report Type: Spontaneous
  Country: US (occurrence: US)
  Receive Date: 20190528
  Receipt Date: 20201124
  Transmission Date: 20210113
  Serious: Yes (Hospitalization, Other)
  Sender: FDA-Public Use
  Company Number: US-JNJFOC-20190528266

PATIENT
  Age: 28 Year
  Sex: Male

DRUGS (6)
  1. REMICADE [Suspect]
     Active Substance: INFLIXIMAB
     Route: 042
  2. METHOTREXATE. [Concomitant]
     Active Substance: METHOTREXATE
     Route: 058
  3. REMICADE [Suspect]
     Active Substance: INFLIXIMAB
     Route: 042
  4. REMICADE [Suspect]
     Active Substance: INFLIXIMAB
     Route: 042
  5. REMICADE [Suspect]
     Active Substance: INFLIXIMAB
     Indication: COLITIS ULCERATIVE
     Route: 042
  6. METHOTREXATE. [Concomitant]
     Active Substance: METHOTREXATE
     Route: 048

REACTIONS (10)
  - Off label use [Unknown]
  - Cytomegalovirus colitis [Recovered/Resolved]
  - Molluscum contagiosum [Unknown]
  - Herpes zoster [Unknown]
  - Pseudopolyp [Unknown]
  - Product use issue [Unknown]
  - Colitis ulcerative [Unknown]
  - Drug ineffective [Unknown]
  - Drug level above therapeutic [Recovering/Resolving]
  - Therapy non-responder [Unknown]
